FAERS Safety Report 8359351-0 (Version None)
Quarter: 2012Q2

REPORT INFORMATION
  Report Type: 
  Country: None (occurrence: None)
  Receive Date: 20120515
  Receipt Date: 20120510
  Transmission Date: 20120825
  Serious: No
  Sender: FDA-Public Use
  Company Number: US-PFIZER INC-2012099630

PATIENT
  Sex: Male
  Weight: 66.66 kg

DRUGS (5)
  1. DIOVAN [Concomitant]
     Indication: BLOOD PRESSURE
     Dosage: 320 MG, DAILY
  2. VITAMIN B6 [Concomitant]
     Dosage: 100 MG, UNK
  3. ACETYLSALICYLIC ACID [Concomitant]
     Dosage: 81 MG, DAILY
  4. SUTENT [Suspect]
     Indication: GASTROINTESTINAL STROMAL TUMOUR
     Dosage: 37.5 MG, (12.5 MG, 3 CAPSULES)
     Dates: start: 20110805
  5. MULTI-VITAMINS [Concomitant]
     Dosage: UNK

REACTIONS (13)
  - PALMAR-PLANTAR ERYTHRODYSAESTHESIA SYNDROME [None]
  - HYPERKERATOSIS [None]
  - WEIGHT DECREASED [None]
  - DECREASED APPETITE [None]
  - NAUSEA [None]
  - DYSGEUSIA [None]
  - DIARRHOEA [None]
  - PRURITUS [None]
  - BLOOD PRESSURE FLUCTUATION [None]
  - STOMATITIS [None]
  - DYSGRAPHIA [None]
  - VOMITING [None]
  - PAIN IN EXTREMITY [None]
